FAERS Safety Report 5334675-X (Version None)
Quarter: 2007Q2

REPORT INFORMATION
  Report Type: 
  Country: None (occurrence: None)
  Receive Date: 20070525
  Receipt Date: 20070521
  Transmission Date: 20071010
  Serious: Yes (Hospitalization)
  Sender: FDA-Public Use
  Company Number: D0053139A

PATIENT
  Age: 25 Year
  Sex: Female
  Weight: 68 kg

DRUGS (5)
  1. LAMICTAL [Suspect]
     Indication: EPILEPSY
     Dosage: 5MG PER DAY
     Route: 048
     Dates: start: 20061005, end: 20061222
  2. ORFIRIL LONG [Concomitant]
     Indication: EPILEPSY
     Dosage: 1000MG TWICE PER DAY
     Route: 048
     Dates: start: 19860101
  3. SABRIL [Concomitant]
     Indication: EPILEPSY
     Dosage: 3500MG PER DAY
     Route: 048
     Dates: start: 19920101, end: 20070211
  4. TOPAMAX [Concomitant]
     Indication: EPILEPSY
     Dosage: 25MG TWICE PER DAY
     Route: 048
     Dates: start: 20060101
  5. ISOTREX [Concomitant]
     Route: 061

REACTIONS (3)
  - COAGULOPATHY [None]
  - HAEMATOMA [None]
  - HEPATIC FUNCTION ABNORMAL [None]
